FAERS Safety Report 7021926-9 (Version None)
Quarter: 2010Q3

REPORT INFORMATION
  Report Type: 
  Country: None (occurrence: None)
  Receive Date: 20100930
  Receipt Date: 20100921
  Transmission Date: 20110219
  Serious: Yes (Hospitalization)
  Sender: FDA-Public Use
  Company Number: US-ASTRAZENECA-2010SE44373

PATIENT
  Age: 78 Year
  Sex: Female
  Weight: 45.4 kg

DRUGS (10)
  1. ENTOCORT EC [Suspect]
     Route: 048
  2. CRESTOR [Suspect]
     Route: 048
  3. METOPROLOL TARTRATE [Concomitant]
  4. PROTONIX [Concomitant]
     Indication: GASTROOESOPHAGEAL REFLUX DISEASE
  5. CHOLESTERAMINE [Concomitant]
  6. AZOR [Concomitant]
     Indication: HYPERTENSION
  7. VITAMIN D [Concomitant]
  8. FOLIC ACID [Concomitant]
  9. ASPIRIN [Concomitant]
  10. PREMARIN [Concomitant]

REACTIONS (3)
  - COELIAC DISEASE [None]
  - RENAL FAILURE [None]
  - VOMITING [None]
